FAERS Safety Report 15158514 (Version 1)
Quarter: 2018Q3

REPORT INFORMATION
  Report Type: Spontaneous
  Country: GB (occurrence: GB)
  Receive Date: 20180718
  Receipt Date: 20180718
  Transmission Date: 20181010
  Serious: Yes (Other)
  Sender: FDA-Public Use
  Company Number: GB-MYLANLABS-2018M1051325

PATIENT
  Age: 23 Year
  Sex: Female
  Weight: 57.15 kg

DRUGS (1)
  1. ISOTRETINOIN. [Suspect]
     Active Substance: ISOTRETINOIN
     Indication: ACNE
     Dosage: UNK
     Route: 048
     Dates: start: 20160101

REACTIONS (2)
  - Anxiety [Recovered/Resolved with Sequelae]
  - Depression suicidal [Recovered/Resolved]

NARRATIVE: CASE EVENT DATE: 20160101
